FAERS Safety Report 9225313 (Version 2)
Quarter: 2013Q2

REPORT INFORMATION
  Report Type: Spontaneous
  Country: US (occurrence: US)
  Receive Date: 20130411
  Receipt Date: 20130412
  Transmission Date: 20140414
  Serious: Yes (Other)
  Sender: FDA-Public Use
  Company Number: PHEH2013US008012

PATIENT
  Age: 70 Year
  Sex: Male

DRUGS (2)
  1. GLEEVEC [Suspect]
     Indication: GASTROINTESTINAL STROMAL TUMOUR
     Dosage: UNK UKN, UNK
  2. GLEEVEC? [Suspect]

REACTIONS (2)
  - Renal cell carcinoma [Unknown]
  - Second primary malignancy [Unknown]
